FAERS Safety Report 8384009-1 (Version None)
Quarter: 2012Q2

REPORT INFORMATION
  Report Type: 
  Country: None (occurrence: None)
  Receive Date: 20120524
  Receipt Date: 20120521
  Transmission Date: 20120825
  Serious: Yes (Other)
  Sender: FDA-Public Use
  Company Number: AR-ROCHE-1071432

PATIENT
  Sex: Female

DRUGS (1)
  1. LUCENTIS [Suspect]
     Indication: MACULOPATHY
     Dosage: 3 AMPULES IN TOTAL
     Dates: start: 20110101

REACTIONS (3)
  - AMNESIA [None]
  - FALL [None]
  - JOINT DISLOCATION [None]
